FAERS Safety Report 4815961-6 (Version None)
Quarter: 2005Q4

REPORT INFORMATION
  Report Type: 
  Country: None (occurrence: None)
  Receive Date: 20051031
  Receipt Date: 20020808
  Transmission Date: 20060501
  Serious: Yes (Other)
  Sender: FDA-Public Use
  Company Number: BD-ROCHE-319008

PATIENT
  Age: 42 Year
  Sex: Female
  Weight: 47 kg

DRUGS (3)
  1. RIBAVIRIN [Suspect]
     Route: 048
     Dates: start: 20020428, end: 20020804
  2. PEG-INTERFERON ALFA 2A (RO 25-8310) [Suspect]
     Route: 058
     Dates: start: 20020428
  3. FOLIC ACID [Concomitant]
     Dates: start: 20020724

REACTIONS (1)
  - THALASSAEMIA BETA [None]
